FAERS Safety Report 24066949 (Version 1)
Quarter: 2024Q3

REPORT INFORMATION
  Report Type: Report from Study
  Country: EG (occurrence: EG)
  Receive Date: 20240709
  Receipt Date: 20240709
  Transmission Date: 20241017
  Serious: Yes (Other)
  Sender: MYLAN
  Company Number: EG-MYLANLABS-2024M1063077

PATIENT

DRUGS (1)
  1. METHOTREXATE [Suspect]
     Active Substance: METHOTREXATE
     Indication: Keratoacanthoma
     Dosage: UNK,RECEIVED METHOTREXATE 25 MG/ML
     Route: 026

REACTIONS (2)
  - Drug ineffective [Unknown]
  - Off label use [Unknown]
